FAERS Safety Report 18630397 (Version 1)
Quarter: 2020Q4

REPORT INFORMATION
  Report Type: Spontaneous
  Country: MX (occurrence: MX)
  Receive Date: 20201217
  Receipt Date: 20201217
  Transmission Date: 20210114
  Serious: Yes (Hospitalization, Other)
  Sender: FDA-Public Use
  Company Number: MX-SA-2020SA344621

PATIENT

DRUGS (1)
  1. LANTUS [Suspect]
     Active Substance: INSULIN GLARGINE
     Indication: TYPE 2 DIABETES MELLITUS
     Dosage: 38 IU
     Route: 058
     Dates: start: 2012, end: 202011

REACTIONS (6)
  - Visual impairment [Not Recovered/Not Resolved]
  - COVID-19 pneumonia [Recovered/Resolved]
  - Diabetes mellitus inadequate control [Unknown]
  - Renal disorder [Unknown]
  - Diabetic vascular disorder [Unknown]
  - Gait disturbance [Not Recovered/Not Resolved]

NARRATIVE: CASE EVENT DATE: 2017
